FAERS Safety Report 5582831-8 (Version None)
Quarter: 2008Q1

REPORT INFORMATION
  Report Type: 
  Country: None (occurrence: None)
  Receive Date: 20080107
  Receipt Date: 20071226
  Transmission Date: 20080703
  Serious: Yes (Hospitalization, Other)
  Sender: FDA-Public Use
  Company Number: US-AMGEN-STX258193

PATIENT
  Sex: Male

DRUGS (1)
  1. ENBREL [Suspect]
     Indication: PSORIATIC ARTHROPATHY
     Route: 058
     Dates: start: 20000101, end: 20071203

REACTIONS (4)
  - OCULAR ICTERUS [None]
  - PANCREATIC DUCT OBSTRUCTION [None]
  - PANCREATIC MASS [None]
  - PRURITUS GENERALISED [None]
